FAERS Safety Report 4724366-8 (Version None)
Quarter: 2005Q3

REPORT INFORMATION
  Report Type: 
  Country: None (occurrence: None)
  Receive Date: 20050720
  Receipt Date: 20050720
  Transmission Date: 20060218
  Serious: Yes (Other)
  Sender: FDA-Public Use
  Company Number: None

PATIENT
  Age: 20 Year
  Sex: Male
  Weight: 82.6 kg

DRUGS (1)
  1. HEPARIN [Suspect]
     Dosage: 500 UNITS CONT PUSH X 1
     Route: 050
     Dates: start: 20050131

REACTIONS (3)
  - INFUSION RELATED REACTION [None]
  - THROAT TIGHTNESS [None]
  - URTICARIA [None]
